FAERS Safety Report 7387893-3 (Version None)
Quarter: 2011Q2

REPORT INFORMATION
  Report Type: 
  Country: None (occurrence: None)
  Receive Date: 20110401
  Receipt Date: 20110321
  Transmission Date: 20111010
  Serious: Yes (Hospitalization, Other)
  Sender: FDA-Public Use
  Company Number: PHHY2010BR74130

PATIENT
  Sex: Female
  Weight: 60 kg

DRUGS (5)
  1. ATENOLOL [Concomitant]
     Dosage: 1 DF, QD
     Route: 048
  2. PLAVIX [Concomitant]
     Dosage: 1 TABLET PER DAY
     Route: 048
     Dates: start: 20101020
  3. LOSARTAN POTASSIUM [Concomitant]
     Dosage: 1 TABLET PER DAY
     Route: 048
     Dates: start: 20101020
  4. EXELON [Suspect]
     Indication: MEMORY IMPAIRMENT
     Dosage: 9 MG/5CM2
     Route: 062
  5. EXELON [Suspect]
     Dosage: 9 MG/5CM2
     Route: 062

REACTIONS (2)
  - INFARCTION [None]
  - CONFUSIONAL STATE [None]
